FAERS Safety Report 7940164-6 (Version None)
Quarter: 2011Q4

REPORT INFORMATION
  Report Type: 
  Country: None (occurrence: None)
  Receive Date: 20111125
  Receipt Date: 20070928
  Transmission Date: 20120403
  Serious: Yes (Hospitalization, Other)
  Sender: FDA-Public Use
  Company Number: PHHY2007BR011310

PATIENT
  Age: 83 Year
  Sex: Female

DRUGS (2)
  1. DIOVAN HCT [Suspect]
     Indication: HYPERTENSION
     Dosage: 1 DF, DAILY
  2. METOPROLOL SUCCINATE [Concomitant]
     Indication: HYPERTENSION

REACTIONS (4)
  - FALL [None]
  - CONTUSION [None]
  - SKIN DISCOLOURATION [None]
  - UPPER LIMB FRACTURE [None]
